FAERS Safety Report 6431531-0 (Version None)
Quarter: 2009Q4

REPORT INFORMATION
  Report Type: 
  Country: None (occurrence: None)
  Receive Date: 20091106
  Receipt Date: 20091029
  Transmission Date: 20100525
  Serious: Yes (Hospitalization)
  Sender: FDA-Public Use
  Company Number: US-ABBOTT-09P-163-0605689-00

PATIENT
  Sex: Male
  Weight: 83.99 kg

DRUGS (9)
  1. HUMIRA [Suspect]
     Indication: CROHN'S DISEASE
  2. ASACOL [Concomitant]
     Indication: DRUG USE FOR UNKNOWN INDICATION
  3. NEXIUM [Concomitant]
     Indication: DRUG USE FOR UNKNOWN INDICATION
  4. PERCOCET [Concomitant]
     Indication: DRUG USE FOR UNKNOWN INDICATION
     Dosage: 10/650 EVERY SIX HOURS AS NEEDED
  5. ACIDOPHILUS [Concomitant]
     Indication: DRUG USE FOR UNKNOWN INDICATION
  6. MESALAMINE [Concomitant]
     Indication: DRUG USE FOR UNKNOWN INDICATION
     Dosage: 4GM/60ML DAILY
     Route: 054
     Dates: start: 20091021
  7. CIPRO [Concomitant]
     Indication: DRUG USE FOR UNKNOWN INDICATION
     Dates: start: 20091021
  8. METRONIDAZOLE [Concomitant]
     Indication: DRUG USE FOR UNKNOWN INDICATION
     Dates: start: 20091021
  9. ENTOCORT EC [Concomitant]
     Indication: DRUG USE FOR UNKNOWN INDICATION
     Dates: start: 20091019

REACTIONS (5)
  - CROHN'S DISEASE [None]
  - GASTROINTESTINAL INFLAMMATION [None]
  - HAEMATOCHEZIA [None]
  - HAEMOGLOBIN DECREASED [None]
  - NEPHROLITHIASIS [None]
